FAERS Safety Report 17997316 (Version 3)
Quarter: 2020Q3

REPORT INFORMATION
  Report Type: Report from Study
  Country: US (occurrence: US)
  Receive Date: 20200708
  Receipt Date: 20200827
  Transmission Date: 20201103
  Serious: No
  Sender: FDA-Public Use
  Company Number: NVSC2020US188211

PATIENT
  Sex: Female

DRUGS (1)
  1. COSENTYX [Suspect]
     Active Substance: SECUKINUMAB
     Indication: PSORIASIS
     Dosage: 300 MG, QW
     Route: 058
     Dates: start: 20200609

REACTIONS (5)
  - Muscular weakness [Unknown]
  - Burning sensation [Unknown]
  - Drug ineffective [Unknown]
  - Psoriasis [Unknown]
  - Blood glucose increased [Unknown]
